FAERS Safety Report 9188235 (Version 1)
Quarter: 2013Q1

REPORT INFORMATION
  Report Type: Spontaneous
  Country: SE (occurrence: SE)
  Receive Date: 20130325
  Receipt Date: 20130325
  Transmission Date: 20140127
  Serious: Yes (Life-Threatening, Hospitalization)
  Sender: FDA-Public Use
  Company Number: SE-BRISTOL-MYERS SQUIBB COMPANY-18592055

PATIENT
  Age: 28 Year
  Sex: Female

DRUGS (5)
  1. ABILIFY TABS 5 MG [Suspect]
  2. RISPERDAL [Suspect]
     Dosage: FILM-COATED TABLET
  3. PARGITAN [Suspect]
     Dosage: TABS
  4. TRILAFON [Suspect]
     Dosage: 1DF = 108 MG/ML, DECANOAT SOLUTION FOR INJECTION
  5. ZYPREXA [Suspect]
     Dosage: TABS

REACTIONS (10)
  - Depression [Unknown]
  - Amnesia [Unknown]
  - Dysphoria [Unknown]
  - Fatigue [Unknown]
  - Bradyphrenia [Unknown]
  - Personality change [Unknown]
  - Speech disorder [Unknown]
  - Muscle twitching [Unknown]
  - Hypoaesthesia [Unknown]
  - Hallucination [Unknown]
